FAERS Safety Report 12253110 (Version 3)
Quarter: 2016Q2

REPORT INFORMATION
  Report Type: Spontaneous
  Country: US (occurrence: US)
  Receive Date: 20160411
  Receipt Date: 20160526
  Transmission Date: 20160815
  Serious: Yes (Hospitalization, Other)
  Sender: FDA-Public Use
  Company Number: US-GLAXOSMITHKLINE-US2016041695

PATIENT
  Sex: Female

DRUGS (2)
  1. INCRUSE ELLIPTA [Suspect]
     Active Substance: UMECLIDINIUM BROMIDE
     Indication: PRODUCT USED FOR UNKNOWN INDICATION
     Dosage: UNK
     Route: 055
  2. INCRUSE ELLIPTA [Suspect]
     Active Substance: UMECLIDINIUM BROMIDE
     Dosage: UNK

REACTIONS (20)
  - Eye swelling [Unknown]
  - Swelling face [Unknown]
  - Vision blurred [Unknown]
  - Hospitalisation [Unknown]
  - Chest discomfort [Unknown]
  - Urinary incontinence [Unknown]
  - Back pain [Unknown]
  - Gingival pain [Unknown]
  - Ocular hyperaemia [Unknown]
  - Fatigue [Unknown]
  - Swollen tongue [Unknown]
  - Rhinorrhoea [Unknown]
  - Upper respiratory tract infection [Unknown]
  - Wheezing [Unknown]
  - Headache [Unknown]
  - Oral pain [Unknown]
  - Pain in jaw [Unknown]
  - Chills [Unknown]
  - Cataract [Unknown]
  - Arthralgia [Unknown]
